FAERS Safety Report 23842161 (Version 3)
Quarter: 2024Q4

REPORT INFORMATION
  Report Type: Report from Study
  Country: CA (occurrence: CA)
  Receive Date: 20240510
  Receipt Date: 20241114
  Transmission Date: 20250114
  Serious: Yes (Other)
  Sender: CELLTRION
  Company Number: CA-CELLTRION INC.-2023CA019787

PATIENT

DRUGS (4)
  1. ADALIMUMAB-AATY [Suspect]
     Active Substance: ADALIMUMAB-AATY
     Indication: Ankylosing spondylitis
     Dosage: 40 MILLIGRAM, Q2WEEKS
     Route: 058
     Dates: start: 20230907
  2. ADALIMUMAB-AATY [Suspect]
     Active Substance: ADALIMUMAB-AATY
     Dosage: 40 MILLIGRAM, Q2WEEKS
     Route: 058
     Dates: start: 20231004
  3. ADALIMUMAB-AATY [Suspect]
     Active Substance: ADALIMUMAB-AATY
     Dosage: 40 MILLIGRAM, Q2WEEKS
     Route: 058
     Dates: start: 20240625
  4. ADALIMUMAB-AATY [Suspect]
     Active Substance: ADALIMUMAB-AATY
     Dosage: 40 MILLIGRAM, Q2WEEKS
     Route: 058
     Dates: start: 20240830

REACTIONS (14)
  - Ill-defined disorder [Recovering/Resolving]
  - Impaired healing [Recovering/Resolving]
  - Fatigue [Recovered/Resolved]
  - Decreased immune responsiveness [Unknown]
  - Oropharyngeal pain [Recovered/Resolved]
  - Productive cough [Recovering/Resolving]
  - Stomatitis [Recovered/Resolved]
  - Muscular weakness [Recovered/Resolved]
  - Pyrexia [Recovered/Resolved]
  - Headache [Recovered/Resolved]
  - Nasopharyngitis [Recovered/Resolved]
  - Intentional dose omission [Recovered/Resolved]
  - Inappropriate schedule of product administration [Unknown]
  - Therapeutic response unexpected [Recovered/Resolved]

NARRATIVE: CASE EVENT DATE: 20240618
